FAERS Safety Report 5351349-X (Version None)
Quarter: 2007Q2

REPORT INFORMATION
  Report Type: 
  Country: None (occurrence: None)
  Receive Date: 20070608
  Receipt Date: 20070601
  Transmission Date: 20071010
  Serious: Yes (Hospitalization)
  Sender: FDA-Public Use
  Company Number: US-BOEHRINGER INGELHEIM PHARMACEUTICALS, INC.-2007-BP-07528BP

PATIENT
  Sex: Male

DRUGS (8)
  1. FLOMAX [Suspect]
     Indication: BENIGN PROSTATIC HYPERPLASIA
     Route: 048
     Dates: start: 20070115
  2. AMBIEN [Suspect]
  3. DIAZEPAM [Suspect]
  4. PAXIL [Suspect]
     Route: 048
  5. ATENOLOL [Suspect]
  6. LIPITOR [Suspect]
  7. ASTHEMEX [Suspect]
  8. NASONEX [Suspect]

REACTIONS (2)
  - JOINT INJURY [None]
  - PARAESTHESIA [None]
